FAERS Safety Report 17800540 (Version 1)
Quarter: 2020Q2

REPORT INFORMATION
  Report Type: Spontaneous
  Country: FR (occurrence: FR)
  Receive Date: 20200519
  Receipt Date: 20200519
  Transmission Date: 20200714
  Serious: Yes (Death, Life-Threatening, Hospitalization, Other)
  Sender: FDA-Public Use
  Company Number: FR-AUROBINDO-AUR-APL-2020-024535

PATIENT
  Age: 72 Year
  Sex: Male
  Weight: 65 kg

DRUGS (2)
  1. PADERYL [Concomitant]
     Indication: PRODUCT USED FOR UNKNOWN INDICATION
     Dosage: UNK
     Route: 065
  2. IBUPROFEN. [Suspect]
     Active Substance: IBUPROFEN
     Indication: INFLUENZA LIKE ILLNESS
     Dosage: 1600 MILLIGRAM, DAILY
     Route: 048
     Dates: start: 20200310, end: 20200312

REACTIONS (2)
  - Condition aggravated [Fatal]
  - Severe acute respiratory syndrome [Fatal]

NARRATIVE: CASE EVENT DATE: 20200312
